FAERS Safety Report 24156364 (Version 4)
Quarter: 2024Q3

REPORT INFORMATION
  Report Type: Spontaneous
  Country: US (occurrence: US)
  Receive Date: 20240731
  Receipt Date: 20240926
  Transmission Date: 20241017
  Serious: No
  Sender: ROCHE
  Company Number: US-ROCHE-10000040435

PATIENT
  Age: 59 Year
  Sex: Female

DRUGS (5)
  1. XOLAIR PFS [Suspect]
     Active Substance: OMALIZUMAB
     Indication: Asthma
     Route: 058
     Dates: start: 202302
  2. XOLAIR PFS [Suspect]
     Active Substance: OMALIZUMAB
  3. XOLAIR [Suspect]
     Active Substance: OMALIZUMAB
     Indication: Asthma
     Dosage: STRENGTH: 300 MG/2 ML
     Route: 058
     Dates: start: 202302
  4. XOLAIR [Suspect]
     Active Substance: OMALIZUMAB
     Dosage: STRENGTH: 150 MG/ML
     Route: 058
     Dates: start: 202302
  5. TAKHZYRO [Concomitant]
     Active Substance: LANADELUMAB-FLYO
     Dosage: PFS

REACTIONS (7)
  - Swelling face [Unknown]
  - Eye swelling [Unknown]
  - Mouth swelling [Unknown]
  - Swollen tongue [Unknown]
  - Abdominal distension [Unknown]
  - Genital swelling [Unknown]
  - Swelling [Unknown]

NARRATIVE: CASE EVENT DATE: 20240719
